FAERS Safety Report 12613049 (Version 1)
Quarter: 2016Q3

REPORT INFORMATION
  Report Type: Spontaneous
  Country: US (occurrence: US)
  Receive Date: 20160802
  Receipt Date: 20160802
  Transmission Date: 20161109
  Serious: No
  Sender: FDA-Public Use
  Company Number: US-PAR PHARMACEUTICAL, INC-2016SCPR015187

PATIENT

DRUGS (5)
  1. CALCITONIN [Suspect]
     Active Substance: CALCITONIN
     Dosage: 1 SPR, OD, IN ALTERNATING NOSTRILS
     Route: 045
  2. NP THYROID [Concomitant]
     Active Substance: LEVOTHYROXINE\LIOTHYRONINE
     Indication: HYPOTHYROIDISM
     Dosage: UNK, OD
     Route: 048
  3. CALCITONIN [Suspect]
     Active Substance: CALCITONIN
     Indication: OSTEOPOROSIS
     Dosage: 1 SPR, OD, IN ALTERNATING NOSTRILS
     Route: 045
     Dates: start: 201512
  4. AMITRIPTYLINE [Concomitant]
     Active Substance: AMITRIPTYLINE
     Indication: ANXIETY
     Dosage: 1 DF, HS
     Route: 048
  5. EVISTA [Concomitant]
     Active Substance: RALOXIFENE HYDROCHLORIDE
     Indication: OSTEOPOROSIS
     Dosage: UNK, OD
     Route: 048

REACTIONS (3)
  - Drug administration error [Unknown]
  - Product taste abnormal [Not Recovered/Not Resolved]
  - Product odour abnormal [Not Recovered/Not Resolved]

NARRATIVE: CASE EVENT DATE: 201512
